FAERS Safety Report 9064151 (Version 1)
Quarter: 2013Q1

REPORT INFORMATION
  Report Type: Spontaneous
  Country: US (occurrence: US)
  Receive Date: 20130128
  Receipt Date: 20130128
  Transmission Date: 20140127
  Serious: No
  Sender: FDA-Public Use
  Company Number: US-MYLANLABS-2012S1024064

PATIENT
  Age: 24 Year
  Sex: Female

DRUGS (5)
  1. CLONIDINE TRANSDERMAL SYSTEM [Suspect]
     Indication: TACHYCARDIA
     Dosage: QWEEK
     Route: 062
     Dates: start: 201209
  2. CLONIDINE TRANSDERMAL SYSTEM [Suspect]
     Indication: DRUG WITHDRAWAL SYNDROME
     Dosage: QWEEK
     Route: 062
     Dates: start: 201209
  3. CLONIDINE TRANSDERMAL SYSTEM [Suspect]
     Indication: OFF LABEL USE
     Dosage: QWEEK
     Route: 062
     Dates: start: 201209
  4. TYLENOL [Concomitant]
  5. IBUPROFEN [Concomitant]

REACTIONS (5)
  - Drug ineffective for unapproved indication [Recovered/Resolved]
  - Tachycardia [Recovered/Resolved]
  - Dyspnoea [Recovered/Resolved]
  - Chills [Recovered/Resolved]
  - Hyperhidrosis [Recovered/Resolved]
